FAERS Safety Report 8971150 (Version 3)
Quarter: 2013Q3

REPORT INFORMATION
  Report Type: Spontaneous
  Country: DK (occurrence: DK)
  Receive Date: 20121217
  Receipt Date: 20130909
  Transmission Date: 20140515
  Serious: Yes (Other)
  Sender: FDA-Public Use
  Company Number: DK-PFIZER INC-2012131965

PATIENT
  Age: 32 Year
  Sex: Female

DRUGS (1)
  1. CYTOTEC [Suspect]
     Indication: LABOUR INDUCTION
     Dosage: 2X25 MICROGRAMS WITH FEW HOURS?INTERVALS
     Dates: start: 20110101

REACTIONS (9)
  - Drug ineffective for unapproved indication [Unknown]
  - Amniocentesis abnormal [Recovered/Resolved]
  - Prolonged labour [Recovered/Resolved]
  - Postpartum depression [Unknown]
  - Vaginal infection [Recovered/Resolved]
  - Hypersensitivity [Recovered/Resolved]
  - Rash [Recovered/Resolved]
  - Pruritus [Recovered/Resolved]
  - Sensory disturbance [Recovered/Resolved]
